FAERS Safety Report 8614603-1 (Version None)
Quarter: 2012Q3

REPORT INFORMATION
  Report Type: 
  Country: None (occurrence: None)
  Receive Date: 20120823
  Receipt Date: 20120815
  Transmission Date: 20120928
  Serious: Yes (Hospitalization)
  Sender: FDA-Public Use
  Company Number: US-ASTELLAS-2012US006987

PATIENT
  Sex: Male
  Weight: 86 kg

DRUGS (2)
  1. LANTUS [Concomitant]
     Indication: DIABETES MELLITUS
     Dosage: UNK
     Route: 065
  2. PROGRAF [Suspect]
     Indication: HEART TRANSPLANT
     Dosage: 2.5 MG, BID
     Route: 048

REACTIONS (2)
  - VOMITING [None]
  - FOOD POISONING [None]
